FAERS Safety Report 24984135 (Version 1)
Quarter: 2025Q1

REPORT INFORMATION
  Report Type: Other
  Country: CA (occurrence: CA)
  Receive Date: 20250219
  Receipt Date: 20250219
  Transmission Date: 20250409
  Serious: Yes (Other)
  Sender: BIOCON
  Company Number: CA-BIOCON BIOLOGICS LIMITED-BBL2025000757

PATIENT

DRUGS (626)
  1. ADALIMUMAB [Suspect]
     Active Substance: ADALIMUMAB
     Indication: Crohn^s disease
     Route: 058
  2. ADALIMUMAB [Suspect]
     Active Substance: ADALIMUMAB
     Indication: Colitis ulcerative
     Route: 058
  3. ADALIMUMAB [Suspect]
     Active Substance: ADALIMUMAB
     Route: 065
  4. ADALIMUMAB [Suspect]
     Active Substance: ADALIMUMAB
     Route: 065
  5. ADALIMUMAB [Suspect]
     Active Substance: ADALIMUMAB
     Route: 065
  6. ADALIMUMAB [Suspect]
     Active Substance: ADALIMUMAB
     Route: 065
  7. ADALIMUMAB [Suspect]
     Active Substance: ADALIMUMAB
     Route: 065
  8. ADALIMUMAB [Suspect]
     Active Substance: ADALIMUMAB
     Route: 058
  9. ADALIMUMAB [Suspect]
     Active Substance: ADALIMUMAB
     Route: 065
  10. ADALIMUMAB [Suspect]
     Active Substance: ADALIMUMAB
     Route: 058
  11. ADALIMUMAB [Suspect]
     Active Substance: ADALIMUMAB
     Route: 048
  12. ADALIMUMAB [Suspect]
     Active Substance: ADALIMUMAB
     Route: 048
  13. ADALIMUMAB [Suspect]
     Active Substance: ADALIMUMAB
     Route: 048
  14. ADALIMUMAB [Suspect]
     Active Substance: ADALIMUMAB
     Indication: Crohn^s disease
     Route: 048
  15. ADALIMUMAB [Suspect]
     Active Substance: ADALIMUMAB
     Indication: Colitis ulcerative
     Route: 065
  16. ADALIMUMAB [Suspect]
     Active Substance: ADALIMUMAB
     Indication: Crohn^s disease
     Route: 048
  17. ADALIMUMAB [Suspect]
     Active Substance: ADALIMUMAB
     Indication: Colitis ulcerative
     Route: 048
  18. ADALIMUMAB [Suspect]
     Active Substance: ADALIMUMAB
     Route: 048
  19. ADALIMUMAB [Suspect]
     Active Substance: ADALIMUMAB
     Route: 058
  20. ADALIMUMAB [Suspect]
     Active Substance: ADALIMUMAB
     Route: 065
  21. ADALIMUMAB [Suspect]
     Active Substance: ADALIMUMAB
     Route: 058
  22. ADALIMUMAB [Suspect]
     Active Substance: ADALIMUMAB
     Route: 058
  23. ADALIMUMAB [Suspect]
     Active Substance: ADALIMUMAB
     Route: 058
  24. ADALIMUMAB [Suspect]
     Active Substance: ADALIMUMAB
     Route: 065
  25. ACETAMINOPHEN [Suspect]
     Active Substance: ACETAMINOPHEN
     Indication: Ill-defined disorder
     Route: 065
  26. ACETAMINOPHEN [Suspect]
     Active Substance: ACETAMINOPHEN
     Route: 065
  27. ACETAMINOPHEN [Suspect]
     Active Substance: ACETAMINOPHEN
     Route: 065
  28. ACETAMINOPHEN [Suspect]
     Active Substance: ACETAMINOPHEN
     Route: 065
  29. ALBENDAZOLE [Suspect]
     Active Substance: ALBENDAZOLE
     Indication: Deep vein thrombosis
     Route: 042
  30. ALBENDAZOLE [Suspect]
     Active Substance: ALBENDAZOLE
     Indication: Colitis ulcerative
     Route: 048
  31. ALBENDAZOLE [Suspect]
     Active Substance: ALBENDAZOLE
     Route: 048
  32. ALBENDAZOLE [Suspect]
     Active Substance: ALBENDAZOLE
     Route: 042
  33. ALBENDAZOLE [Suspect]
     Active Substance: ALBENDAZOLE
     Route: 042
  34. ALBENDAZOLE [Suspect]
     Active Substance: ALBENDAZOLE
     Route: 042
  35. ASACOL [Suspect]
     Active Substance: MESALAMINE
     Indication: Colitis ulcerative
     Route: 065
  36. ASACOL [Suspect]
     Active Substance: MESALAMINE
     Route: 065
  37. ASACOL [Suspect]
     Active Substance: MESALAMINE
     Route: 065
  38. ASACOL [Suspect]
     Active Substance: MESALAMINE
     Route: 065
  39. ASACOL [Suspect]
     Active Substance: MESALAMINE
     Route: 065
  40. ASACOL [Suspect]
     Active Substance: MESALAMINE
     Route: 065
  41. ASACOL [Suspect]
     Active Substance: MESALAMINE
     Route: 065
  42. ASACOL [Suspect]
     Active Substance: MESALAMINE
     Route: 065
  43. ASACOL [Suspect]
     Active Substance: MESALAMINE
     Route: 065
  44. ASACOL [Suspect]
     Active Substance: MESALAMINE
     Route: 065
  45. ASACOL [Suspect]
     Active Substance: MESALAMINE
     Route: 065
  46. ASACOL [Suspect]
     Active Substance: MESALAMINE
     Route: 065
  47. ASACOL [Suspect]
     Active Substance: MESALAMINE
     Route: 065
  48. ASACOL [Suspect]
     Active Substance: MESALAMINE
     Route: 065
  49. ASACOL [Suspect]
     Active Substance: MESALAMINE
     Route: 065
  50. ASACOL [Suspect]
     Active Substance: MESALAMINE
     Route: 065
  51. ASACOL [Suspect]
     Active Substance: MESALAMINE
     Route: 065
  52. ASACOL [Suspect]
     Active Substance: MESALAMINE
     Route: 065
  53. ASACOL [Suspect]
     Active Substance: MESALAMINE
     Route: 065
  54. ASACOL [Suspect]
     Active Substance: MESALAMINE
     Route: 048
  55. ASACOL [Suspect]
     Active Substance: MESALAMINE
     Route: 065
  56. ASACOL [Suspect]
     Active Substance: MESALAMINE
     Route: 065
  57. ASACOL [Suspect]
     Active Substance: MESALAMINE
     Route: 065
  58. ASACOL [Suspect]
     Active Substance: MESALAMINE
     Route: 065
  59. ASACOL [Suspect]
     Active Substance: MESALAMINE
     Route: 065
  60. ASACOL [Suspect]
     Active Substance: MESALAMINE
     Indication: Colitis ulcerative
     Route: 065
  61. ASPIRIN [Suspect]
     Active Substance: ASPIRIN
     Indication: Product used for unknown indication
     Route: 065
  62. ASPIRIN [Suspect]
     Active Substance: ASPIRIN
     Indication: Ill-defined disorder
     Route: 065
  63. BUDESONIDE [Suspect]
     Active Substance: BUDESONIDE
     Indication: Colitis ulcerative
     Route: 048
  64. BUDESONIDE [Suspect]
     Active Substance: BUDESONIDE
     Route: 048
  65. BUDESONIDE [Suspect]
     Active Substance: BUDESONIDE
     Route: 065
  66. BUDESONIDE [Suspect]
     Active Substance: BUDESONIDE
     Route: 048
  67. BUDESONIDE [Suspect]
     Active Substance: BUDESONIDE
     Route: 048
  68. BUDESONIDE [Suspect]
     Active Substance: BUDESONIDE
     Route: 048
  69. BUDESONIDE [Suspect]
     Active Substance: BUDESONIDE
     Route: 048
  70. BUDESONIDE [Suspect]
     Active Substance: BUDESONIDE
     Route: 048
  71. BUDESONIDE [Suspect]
     Active Substance: BUDESONIDE
     Route: 048
  72. BUDESONIDE [Suspect]
     Active Substance: BUDESONIDE
     Route: 048
  73. BUDESONIDE [Suspect]
     Active Substance: BUDESONIDE
     Route: 048
  74. BUDESONIDE [Suspect]
     Active Substance: BUDESONIDE
     Route: 048
  75. BUDESONIDE [Suspect]
     Active Substance: BUDESONIDE
     Route: 048
  76. BUDESONIDE [Suspect]
     Active Substance: BUDESONIDE
     Route: 048
  77. BUDESONIDE [Suspect]
     Active Substance: BUDESONIDE
     Route: 048
  78. BUDESONIDE [Suspect]
     Active Substance: BUDESONIDE
     Route: 048
  79. BUDESONIDE [Suspect]
     Active Substance: BUDESONIDE
     Route: 048
  80. BUDESONIDE [Suspect]
     Active Substance: BUDESONIDE
     Route: 048
  81. BUDESONIDE [Suspect]
     Active Substance: BUDESONIDE
     Route: 048
  82. BUDESONIDE [Suspect]
     Active Substance: BUDESONIDE
     Route: 048
  83. BUDESONIDE [Suspect]
     Active Substance: BUDESONIDE
     Route: 048
  84. BUDESONIDE [Suspect]
     Active Substance: BUDESONIDE
     Route: 048
  85. BUDESONIDE [Suspect]
     Active Substance: BUDESONIDE
     Route: 048
  86. BUDESONIDE [Suspect]
     Active Substance: BUDESONIDE
     Route: 048
  87. BUDESONIDE [Suspect]
     Active Substance: BUDESONIDE
     Route: 048
  88. BUDESONIDE [Suspect]
     Active Substance: BUDESONIDE
     Route: 048
  89. BUDESONIDE [Suspect]
     Active Substance: BUDESONIDE
     Route: 048
  90. BUDESONIDE [Suspect]
     Active Substance: BUDESONIDE
     Route: 048
  91. BUDESONIDE [Suspect]
     Active Substance: BUDESONIDE
     Route: 048
  92. BUDESONIDE [Suspect]
     Active Substance: BUDESONIDE
     Route: 048
  93. BUDESONIDE [Suspect]
     Active Substance: BUDESONIDE
     Route: 048
  94. BUDESONIDE [Suspect]
     Active Substance: BUDESONIDE
     Route: 048
  95. BUDESONIDE [Suspect]
     Active Substance: BUDESONIDE
     Route: 048
  96. BUDESONIDE [Suspect]
     Active Substance: BUDESONIDE
     Route: 048
  97. BUDESONIDE [Suspect]
     Active Substance: BUDESONIDE
     Route: 048
  98. BUDESONIDE [Suspect]
     Active Substance: BUDESONIDE
     Route: 048
  99. BUDESONIDE [Suspect]
     Active Substance: BUDESONIDE
     Route: 048
  100. BUDESONIDE [Suspect]
     Active Substance: BUDESONIDE
     Route: 048
  101. BUDESONIDE [Suspect]
     Active Substance: BUDESONIDE
     Route: 048
  102. BUDESONIDE [Suspect]
     Active Substance: BUDESONIDE
     Route: 048
  103. BUDESONIDE [Suspect]
     Active Substance: BUDESONIDE
     Route: 048
  104. BUDESONIDE [Suspect]
     Active Substance: BUDESONIDE
     Route: 048
  105. BUDESONIDE [Suspect]
     Active Substance: BUDESONIDE
     Route: 065
  106. BUDESONIDE [Suspect]
     Active Substance: BUDESONIDE
     Route: 065
  107. BUDESONIDE [Suspect]
     Active Substance: BUDESONIDE
     Route: 065
  108. CANDESARTAN [Suspect]
     Active Substance: CANDESARTAN
     Indication: Product used for unknown indication
     Route: 048
  109. CANDESARTAN [Suspect]
     Active Substance: CANDESARTAN
     Route: 048
  110. CANDESARTAN [Suspect]
     Active Substance: CANDESARTAN
     Route: 048
  111. AZD-1222 [Suspect]
     Active Substance: AZD-1222
     Indication: COVID-19 immunisation
     Route: 065
  112. AZD-1222 [Suspect]
     Active Substance: AZD-1222
     Indication: Adverse drug reaction
     Route: 065
  113. AZD-1222 [Suspect]
     Active Substance: AZD-1222
     Route: 065
  114. AZD-1222 [Suspect]
     Active Substance: AZD-1222
     Route: 065
  115. AZD-1222 [Suspect]
     Active Substance: AZD-1222
     Route: 065
  116. AZD-1222 [Suspect]
     Active Substance: AZD-1222
     Route: 065
  117. AZD-1222 [Suspect]
     Active Substance: AZD-1222
     Route: 065
  118. AZD-1222 [Suspect]
     Active Substance: AZD-1222
     Indication: COVID-19 immunisation
     Route: 065
  119. AZD-1222 [Suspect]
     Active Substance: AZD-1222
     Indication: Adverse drug reaction
     Route: 065
  120. AZD-1222 [Suspect]
     Active Substance: AZD-1222
     Route: 065
  121. AZD-1222 [Suspect]
     Active Substance: AZD-1222
     Route: 065
  122. AZD-1222 [Suspect]
     Active Substance: AZD-1222
     Route: 065
  123. AZD-1222 [Suspect]
     Active Substance: AZD-1222
     Route: 065
  124. AZD-1222 [Suspect]
     Active Substance: AZD-1222
     Route: 065
  125. AZD-1222 [Suspect]
     Active Substance: AZD-1222
     Route: 065
  126. AZD-1222 [Suspect]
     Active Substance: AZD-1222
     Indication: COVID-19 immunisation
     Route: 065
  127. AZD-1222 [Suspect]
     Active Substance: AZD-1222
     Indication: Adverse drug reaction
     Route: 065
  128. AZD-1222 [Suspect]
     Active Substance: AZD-1222
     Route: 065
  129. AZD-1222 [Suspect]
     Active Substance: AZD-1222
     Route: 065
  130. AZD-1222 [Suspect]
     Active Substance: AZD-1222
     Route: 065
  131. AZD-1222 [Suspect]
     Active Substance: AZD-1222
     Route: 065
  132. COMIRNATY (TOZINAMERAN) [Suspect]
     Active Substance: TOZINAMERAN
     Indication: Product used for unknown indication
     Route: 065
  133. CORTIFOAM [Suspect]
     Active Substance: HYDROCORTISONE ACETATE
     Indication: Deep vein thrombosis
     Route: 065
  134. CORTIFOAM [Suspect]
     Active Substance: HYDROCORTISONE ACETATE
     Indication: Colitis ulcerative
     Route: 048
  135. CORTIFOAM [Suspect]
     Active Substance: HYDROCORTISONE ACETATE
     Indication: Deep vein thrombosis
     Route: 048
  136. CORTIFOAM [Suspect]
     Active Substance: HYDROCORTISONE ACETATE
     Indication: Colitis ulcerative
     Route: 048
  137. CORTIFOAM [Suspect]
     Active Substance: HYDROCORTISONE ACETATE
     Route: 048
  138. CORTIFOAM [Suspect]
     Active Substance: HYDROCORTISONE ACETATE
     Route: 065
  139. CORTIFOAM [Suspect]
     Active Substance: HYDROCORTISONE ACETATE
     Route: 048
  140. CORTIFOAM [Suspect]
     Active Substance: HYDROCORTISONE ACETATE
     Route: 065
  141. CORTIFOAM [Suspect]
     Active Substance: HYDROCORTISONE ACETATE
     Route: 065
  142. CORTIFOAM [Suspect]
     Active Substance: HYDROCORTISONE ACETATE
     Route: 065
  143. CORTIFOAM [Suspect]
     Active Substance: HYDROCORTISONE ACETATE
  144. CORTIFOAM [Suspect]
     Active Substance: HYDROCORTISONE ACETATE
     Route: 048
  145. CORTIFOAM [Suspect]
     Active Substance: HYDROCORTISONE ACETATE
     Route: 048
  146. CORTIFOAM [Suspect]
     Active Substance: HYDROCORTISONE ACETATE
     Route: 065
  147. CORTIFOAM [Suspect]
     Active Substance: HYDROCORTISONE ACETATE
     Route: 048
  148. CORTIFOAM [Suspect]
     Active Substance: HYDROCORTISONE ACETATE
     Route: 048
  149. CORTIFOAM [Suspect]
     Active Substance: HYDROCORTISONE ACETATE
     Route: 048
  150. CORTIFOAM [Suspect]
     Active Substance: HYDROCORTISONE ACETATE
     Route: 048
  151. CORTIFOAM [Suspect]
     Active Substance: HYDROCORTISONE ACETATE
     Route: 065
  152. CORTIFOAM [Suspect]
     Active Substance: HYDROCORTISONE ACETATE
     Route: 065
  153. CORTIFOAM [Suspect]
     Active Substance: HYDROCORTISONE ACETATE
     Route: 065
  154. CORTIFOAM [Suspect]
     Active Substance: HYDROCORTISONE ACETATE
     Route: 048
  155. CORTIFOAM [Suspect]
     Active Substance: HYDROCORTISONE ACETATE
     Route: 048
  156. CORTIFOAM [Suspect]
     Active Substance: HYDROCORTISONE ACETATE
     Indication: Deep vein thrombosis
     Route: 065
  157. CORTIFOAM [Suspect]
     Active Substance: HYDROCORTISONE ACETATE
     Indication: Colitis ulcerative
     Route: 065
  158. CORTIFOAM [Suspect]
     Active Substance: HYDROCORTISONE ACETATE
     Route: 065
  159. CORTIFOAM [Suspect]
     Active Substance: HYDROCORTISONE ACETATE
     Route: 065
  160. CORTIFOAM [Suspect]
     Active Substance: HYDROCORTISONE ACETATE
     Route: 065
  161. CORTIFOAM [Suspect]
     Active Substance: HYDROCORTISONE ACETATE
     Route: 065
  162. CORTIFOAM [Suspect]
     Active Substance: HYDROCORTISONE ACETATE
     Route: 065
  163. CORTIFOAM [Suspect]
     Active Substance: HYDROCORTISONE ACETATE
     Route: 065
  164. CORTIFOAM [Suspect]
     Active Substance: HYDROCORTISONE ACETATE
     Route: 065
  165. BUDESONIDE [Suspect]
     Active Substance: BUDESONIDE
     Indication: Colitis ulcerative
     Route: 048
  166. BUDESONIDE [Suspect]
     Active Substance: BUDESONIDE
     Route: 048
  167. BUDESONIDE [Suspect]
     Active Substance: BUDESONIDE
     Route: 048
  168. BUDESONIDE [Suspect]
     Active Substance: BUDESONIDE
     Route: 048
  169. BUDESONIDE [Suspect]
     Active Substance: BUDESONIDE
     Route: 048
  170. BUDESONIDE [Suspect]
     Active Substance: BUDESONIDE
     Route: 048
  171. BUDESONIDE [Suspect]
     Active Substance: BUDESONIDE
     Route: 048
  172. BUDESONIDE [Suspect]
     Active Substance: BUDESONIDE
     Route: 048
  173. BUDESONIDE [Suspect]
     Active Substance: BUDESONIDE
     Route: 048
  174. BUDESONIDE [Suspect]
     Active Substance: BUDESONIDE
     Route: 048
  175. BUDESONIDE [Suspect]
     Active Substance: BUDESONIDE
     Route: 048
  176. BUDESONIDE [Suspect]
     Active Substance: BUDESONIDE
     Route: 048
  177. BUDESONIDE [Suspect]
     Active Substance: BUDESONIDE
     Route: 048
  178. BUDESONIDE [Suspect]
     Active Substance: BUDESONIDE
     Route: 048
  179. BUDESONIDE [Suspect]
     Active Substance: BUDESONIDE
     Route: 048
  180. BUDESONIDE [Suspect]
     Active Substance: BUDESONIDE
     Route: 048
  181. BUDESONIDE [Suspect]
     Active Substance: BUDESONIDE
     Route: 048
  182. BUDESONIDE [Suspect]
     Active Substance: BUDESONIDE
     Route: 048
  183. BUDESONIDE [Suspect]
     Active Substance: BUDESONIDE
     Route: 048
  184. BUDESONIDE [Suspect]
     Active Substance: BUDESONIDE
     Route: 048
  185. BUDESONIDE [Suspect]
     Active Substance: BUDESONIDE
     Route: 048
  186. BUDESONIDE [Suspect]
     Active Substance: BUDESONIDE
     Route: 048
  187. BUDESONIDE [Suspect]
     Active Substance: BUDESONIDE
     Route: 048
  188. BUDESONIDE [Suspect]
     Active Substance: BUDESONIDE
     Route: 048
  189. BUDESONIDE [Suspect]
     Active Substance: BUDESONIDE
     Route: 048
  190. BUDESONIDE [Suspect]
     Active Substance: BUDESONIDE
     Route: 048
  191. BUDESONIDE [Suspect]
     Active Substance: BUDESONIDE
     Route: 048
  192. BUDESONIDE [Suspect]
     Active Substance: BUDESONIDE
     Route: 048
  193. BUDESONIDE [Suspect]
     Active Substance: BUDESONIDE
     Route: 048
  194. CORTISONE (HYDROCORTISONE) [Suspect]
     Active Substance: HYDROCORTISONE
     Indication: Crohn^s disease
     Route: 048
  195. CORTISONE (HYDROCORTISONE) [Suspect]
     Active Substance: HYDROCORTISONE
     Indication: Colitis ulcerative
     Route: 065
  196. CORTISONE (HYDROCORTISONE) [Suspect]
     Active Substance: HYDROCORTISONE
     Route: 065
  197. CORTISONE (HYDROCORTISONE) [Suspect]
     Active Substance: HYDROCORTISONE
     Route: 048
  198. CORTISONE (HYDROCORTISONE) [Suspect]
     Active Substance: HYDROCORTISONE
     Route: 065
  199. CORTISONE (HYDROCORTISONE) [Suspect]
     Active Substance: HYDROCORTISONE
     Route: 048
  200. CORTISONE (HYDROCORTISONE) [Suspect]
     Active Substance: HYDROCORTISONE
     Route: 065
  201. CORTISONE (HYDROCORTISONE) [Suspect]
     Active Substance: HYDROCORTISONE
     Route: 065
  202. CORTISONE (HYDROCORTISONE) [Suspect]
     Active Substance: HYDROCORTISONE
     Route: 042
  203. CORTISONE (HYDROCORTISONE) [Suspect]
     Active Substance: HYDROCORTISONE
     Route: 048
  204. CORTISONE (HYDROCORTISONE) [Suspect]
     Active Substance: HYDROCORTISONE
     Route: 048
  205. CORTISONE (HYDROCORTISONE) [Suspect]
     Active Substance: HYDROCORTISONE
     Route: 048
  206. CORTISONE (HYDROCORTISONE) [Suspect]
     Active Substance: HYDROCORTISONE
     Route: 048
  207. CORTISONE (HYDROCORTISONE) [Suspect]
     Active Substance: HYDROCORTISONE
     Route: 065
  208. CORTISONE (HYDROCORTISONE) [Suspect]
     Active Substance: HYDROCORTISONE
     Route: 065
  209. CORTISONE (HYDROCORTISONE) [Suspect]
     Active Substance: HYDROCORTISONE
     Dosage: 8 DOSAGE FORM 1 EVERY 1 DAYS
     Route: 048
  210. DAPAGLIFLOZIN [Suspect]
     Active Substance: DAPAGLIFLOZIN
     Indication: Ill-defined disorder
     Route: 065
  211. DAPAGLIFLOZIN [Suspect]
     Active Substance: DAPAGLIFLOZIN
     Route: 065
  212. DAPAGLIFLOZIN [Suspect]
     Active Substance: DAPAGLIFLOZIN
     Route: 065
  213. DESOXIMETASONE [Suspect]
     Active Substance: DESOXIMETASONE
     Indication: Crohn^s disease
     Route: 048
  214. DESOXIMETASONE [Suspect]
     Active Substance: DESOXIMETASONE
     Indication: Colitis ulcerative
     Route: 065
  215. DESOXIMETASONE [Suspect]
     Active Substance: DESOXIMETASONE
     Route: 048
  216. DESOXIMETASONE [Suspect]
     Active Substance: DESOXIMETASONE
     Route: 048
  217. DESOXIMETASONE [Suspect]
     Active Substance: DESOXIMETASONE
     Indication: Crohn^s disease
     Route: 048
  218. DESOXIMETASONE [Suspect]
     Active Substance: DESOXIMETASONE
     Indication: Colitis ulcerative
  219. ENTYVIO [Suspect]
     Active Substance: VEDOLIZUMAB
     Indication: Deep vein thrombosis
     Route: 042
  220. ENTYVIO [Suspect]
     Active Substance: VEDOLIZUMAB
     Indication: Colitis ulcerative
     Route: 065
  221. ENTYVIO [Suspect]
     Active Substance: VEDOLIZUMAB
     Route: 048
  222. ENTYVIO [Suspect]
     Active Substance: VEDOLIZUMAB
     Dosage: 1 DOSAGE FORM 1 EVERY 1 DAYS
     Route: 048
  223. ENTYVIO [Suspect]
     Active Substance: VEDOLIZUMAB
     Route: 065
  224. ENTYVIO [Suspect]
     Active Substance: VEDOLIZUMAB
     Route: 065
  225. ENTYVIO [Suspect]
     Active Substance: VEDOLIZUMAB
     Indication: Deep vein thrombosis
     Route: 065
  226. ENTYVIO [Suspect]
     Active Substance: VEDOLIZUMAB
     Indication: Colitis ulcerative
     Dosage: 1 EVERY 1 DAYS
     Route: 065
  227. ENTYVIO [Suspect]
     Active Substance: VEDOLIZUMAB
     Dosage: 1 DOSAGE FORM, 1 EVERY 1 DAYS
     Route: 048
  228. ENTYVIO [Suspect]
     Active Substance: VEDOLIZUMAB
     Dosage: 8 DOSAGE FORM, 1 EVERY 1 DAYS
     Route: 048
  229. ENTYVIO [Suspect]
     Active Substance: VEDOLIZUMAB
     Route: 042
  230. ENTYVIO [Suspect]
     Active Substance: VEDOLIZUMAB
     Route: 042
  231. ENTYVIO [Suspect]
     Active Substance: VEDOLIZUMAB
     Route: 042
  232. ENTYVIO [Suspect]
     Active Substance: VEDOLIZUMAB
     Route: 042
  233. ENTYVIO [Suspect]
     Active Substance: VEDOLIZUMAB
     Route: 042
  234. ENTYVIO [Suspect]
     Active Substance: VEDOLIZUMAB
     Route: 042
  235. ENTYVIO [Suspect]
     Active Substance: VEDOLIZUMAB
     Route: 042
  236. ENTYVIO [Suspect]
     Active Substance: VEDOLIZUMAB
     Route: 042
  237. ENTYVIO [Suspect]
     Active Substance: VEDOLIZUMAB
     Route: 042
  238. ENTYVIO [Suspect]
     Active Substance: VEDOLIZUMAB
     Route: 042
  239. ENTYVIO [Suspect]
     Active Substance: VEDOLIZUMAB
     Route: 042
  240. ENTYVIO [Suspect]
     Active Substance: VEDOLIZUMAB
     Route: 048
  241. ENTYVIO [Suspect]
     Active Substance: VEDOLIZUMAB
     Dosage: 1 DOSAGE FORM, 1 EVERY 1 DAYS
     Route: 048
  242. ENTYVIO [Suspect]
     Active Substance: VEDOLIZUMAB
     Dosage: 1 DOSAGE FORM, 1 EVERY 1 DAYS
     Route: 048
  243. ENTYVIO [Suspect]
     Active Substance: VEDOLIZUMAB
     Dosage: 1 DOSAGE FORM, 1 EVERY 1 DAYS
     Route: 048
  244. ENTYVIO [Suspect]
     Active Substance: VEDOLIZUMAB
     Dosage: 1 DOSAGE FORM, 1 EVERY 1 DAYS
     Route: 048
  245. ENTYVIO [Suspect]
     Active Substance: VEDOLIZUMAB
     Indication: Deep vein thrombosis
     Route: 065
  246. ENTYVIO [Suspect]
     Active Substance: VEDOLIZUMAB
     Indication: Colitis ulcerative
     Route: 048
  247. EPINEPHRINE HYDROCHLORIDE [Suspect]
     Active Substance: EPINEPHRINE HYDROCHLORIDE
     Indication: Product used for unknown indication
     Route: 065
  248. ESCITALOPRAM [Suspect]
     Active Substance: ESCITALOPRAM OXALATE
     Indication: Product used for unknown indication
     Route: 065
  249. ESOMEPRAZOLE [Suspect]
     Active Substance: ESOMEPRAZOLE
     Indication: Gastritis
     Route: 065
  250. FELODIPINE [Suspect]
     Active Substance: FELODIPINE
     Indication: Hypertension
     Dosage: 5 MILLIGRAM1 EVERY 1 DAYS
     Route: 048
  251. FELODIPINE [Suspect]
     Active Substance: FELODIPINE
     Indication: Hypertension
     Route: 048
  252. FUROSEMIDE [Suspect]
     Active Substance: FUROSEMIDE
     Indication: Product used for unknown indication
     Route: 065
  253. GABAPENTIN [Suspect]
     Active Substance: GABAPENTIN
     Indication: Product used for unknown indication
     Route: 065
  254. GABAPENTIN [Suspect]
     Active Substance: GABAPENTIN
     Dosage: 900 MILLIGRAM1 EVERY 1 DAYS
     Route: 065
  255. GABAPENTIN [Suspect]
     Active Substance: GABAPENTIN
     Route: 065
  256. GABAPENTIN [Suspect]
     Active Substance: GABAPENTIN
     Indication: Product used for unknown indication
     Dosage: 900 MILLIGRAM1 EVERY 1 DAYS
     Route: 065
  257. GABAPENTIN [Suspect]
     Active Substance: GABAPENTIN
     Route: 065
  258. HUMIRA [Suspect]
     Active Substance: ADALIMUMAB
     Indication: Deep vein thrombosis
     Route: 058
  259. HUMIRA [Suspect]
     Active Substance: ADALIMUMAB
     Indication: Colitis ulcerative
     Route: 065
  260. HUMIRA [Suspect]
     Active Substance: ADALIMUMAB
     Indication: Crohn^s disease
     Route: 065
  261. HUMIRA [Suspect]
     Active Substance: ADALIMUMAB
     Route: 065
  262. HUMIRA [Suspect]
     Active Substance: ADALIMUMAB
     Route: 048
  263. HUMIRA [Suspect]
     Active Substance: ADALIMUMAB
     Indication: Deep vein thrombosis
     Route: 065
  264. HUMIRA [Suspect]
     Active Substance: ADALIMUMAB
     Indication: Colitis ulcerative
     Route: 065
  265. HUMIRA [Suspect]
     Active Substance: ADALIMUMAB
     Indication: Crohn^s disease
     Route: 065
  266. HUMIRA [Suspect]
     Active Substance: ADALIMUMAB
     Route: 048
  267. HUMIRA [Suspect]
     Active Substance: ADALIMUMAB
     Route: 048
  268. HUMIRA [Suspect]
     Active Substance: ADALIMUMAB
     Route: 065
  269. HUMIRA [Suspect]
     Active Substance: ADALIMUMAB
     Route: 048
  270. HUMIRA [Suspect]
     Active Substance: ADALIMUMAB
     Route: 065
  271. HUMIRA [Suspect]
     Active Substance: ADALIMUMAB
     Route: 048
  272. HUMIRA [Suspect]
     Active Substance: ADALIMUMAB
     Route: 065
  273. HUMIRA [Suspect]
     Active Substance: ADALIMUMAB
     Route: 065
  274. HYDROCORTISONE [Suspect]
     Active Substance: HYDROCORTISONE
     Indication: Colitis ulcerative
     Route: 065
  275. HYDROCORTISONE [Suspect]
     Active Substance: HYDROCORTISONE
     Route: 065
  276. HYDROCORTISONE [Suspect]
     Active Substance: HYDROCORTISONE
     Route: 048
  277. HYDROCORTISONE [Suspect]
     Active Substance: HYDROCORTISONE
     Route: 048
  278. HYDROCORTISONE [Suspect]
     Active Substance: HYDROCORTISONE
     Route: 048
  279. HYDROCORTISONE [Suspect]
     Active Substance: HYDROCORTISONE
     Route: 048
  280. HYDROCORTISONE [Suspect]
     Active Substance: HYDROCORTISONE
     Route: 048
  281. HYDROCORTISONE [Suspect]
     Active Substance: HYDROCORTISONE
     Route: 048
  282. HYDROCORTISONE [Suspect]
     Active Substance: HYDROCORTISONE
     Dosage: 8 DOSAGE FORM,1 EVERY 1 DAYS
     Route: 048
  283. HYDROCORTISONE [Suspect]
     Active Substance: HYDROCORTISONE
     Route: 048
  284. HYDROCORTISONE [Suspect]
     Active Substance: HYDROCORTISONE
     Route: 065
  285. INFLECTRA [Suspect]
     Active Substance: INFLIXIMAB-DYYB
     Indication: Crohn^s disease
     Route: 065
  286. INFLECTRA [Suspect]
     Active Substance: INFLIXIMAB-DYYB
     Indication: Colitis ulcerative
     Route: 065
  287. INFLECTRA [Suspect]
     Active Substance: INFLIXIMAB-DYYB
     Route: 048
  288. INFLECTRA [Suspect]
     Active Substance: INFLIXIMAB-DYYB
     Route: 042
  289. INFLECTRA [Suspect]
     Active Substance: INFLIXIMAB-DYYB
     Route: 048
  290. INFLECTRA [Suspect]
     Active Substance: INFLIXIMAB-DYYB
     Route: 065
  291. INFLECTRA [Suspect]
     Active Substance: INFLIXIMAB-DYYB
     Route: 048
  292. INFLECTRA [Suspect]
     Active Substance: INFLIXIMAB-DYYB
     Route: 042
  293. INFLECTRA [Suspect]
     Active Substance: INFLIXIMAB-DYYB
     Route: 042
  294. INFLECTRA [Suspect]
     Active Substance: INFLIXIMAB-DYYB
     Route: 042
  295. INFLECTRA [Suspect]
     Active Substance: INFLIXIMAB-DYYB
     Route: 048
  296. INFLECTRA [Suspect]
     Active Substance: INFLIXIMAB-DYYB
     Route: 042
  297. INFLECTRA [Suspect]
     Active Substance: INFLIXIMAB-DYYB
     Route: 042
  298. INFLECTRA [Suspect]
     Active Substance: INFLIXIMAB-DYYB
     Indication: Crohn^s disease
     Route: 065
  299. INFLECTRA [Suspect]
     Active Substance: INFLIXIMAB-DYYB
     Indication: Colitis ulcerative
  300. INFLIXIMAB [Suspect]
     Active Substance: INFLIXIMAB
     Indication: Crohn^s disease
     Route: 042
  301. INFLIXIMAB [Suspect]
     Active Substance: INFLIXIMAB
     Indication: Colitis ulcerative
     Route: 042
  302. INFLIXIMAB [Suspect]
     Active Substance: INFLIXIMAB
     Route: 042
  303. INFLIXIMAB [Suspect]
     Active Substance: INFLIXIMAB
     Route: 042
  304. INFLIXIMAB [Suspect]
     Active Substance: INFLIXIMAB
     Route: 042
  305. INFLIXIMAB [Suspect]
     Active Substance: INFLIXIMAB
     Route: 042
  306. INFLIXIMAB [Suspect]
     Active Substance: INFLIXIMAB
     Route: 065
  307. INFLIXIMAB [Suspect]
     Active Substance: INFLIXIMAB
     Route: 042
  308. INFLIXIMAB [Suspect]
     Active Substance: INFLIXIMAB
     Route: 042
  309. INFLIXIMAB [Suspect]
     Active Substance: INFLIXIMAB
     Route: 042
  310. INFLIXIMAB [Suspect]
     Active Substance: INFLIXIMAB
     Route: 042
  311. INFLIXIMAB [Suspect]
     Active Substance: INFLIXIMAB
     Route: 042
  312. INFLIXIMAB [Suspect]
     Active Substance: INFLIXIMAB
     Route: 042
  313. INFLIXIMAB [Suspect]
     Active Substance: INFLIXIMAB
     Route: 042
  314. INFLIXIMAB [Suspect]
     Active Substance: INFLIXIMAB
     Route: 042
  315. INFLIXIMAB [Suspect]
     Active Substance: INFLIXIMAB
     Route: 042
  316. INFLIXIMAB [Suspect]
     Active Substance: INFLIXIMAB
     Route: 042
  317. INFLIXIMAB [Suspect]
     Active Substance: INFLIXIMAB
     Route: 042
  318. INFLIXIMAB [Suspect]
     Active Substance: INFLIXIMAB
     Route: 042
  319. INFLIXIMAB [Suspect]
     Active Substance: INFLIXIMAB
     Route: 042
  320. INFLIXIMAB [Suspect]
     Active Substance: INFLIXIMAB
     Route: 042
  321. INFLIXIMAB [Suspect]
     Active Substance: INFLIXIMAB
     Route: 042
  322. INFLIXIMAB [Suspect]
     Active Substance: INFLIXIMAB
     Route: 042
  323. INFLIXIMAB [Suspect]
     Active Substance: INFLIXIMAB
     Route: 042
  324. INFLIXIMAB [Suspect]
     Active Substance: INFLIXIMAB
     Route: 042
  325. INFLIXIMAB [Suspect]
     Active Substance: INFLIXIMAB
     Route: 042
  326. INFLIXIMAB [Suspect]
     Active Substance: INFLIXIMAB
     Route: 042
  327. INFLIXIMAB [Suspect]
     Active Substance: INFLIXIMAB
     Route: 042
  328. INFLIXIMAB [Suspect]
     Active Substance: INFLIXIMAB
     Route: 042
  329. INFLIXIMAB [Suspect]
     Active Substance: INFLIXIMAB
     Route: 065
  330. INFLIXIMAB [Suspect]
     Active Substance: INFLIXIMAB
     Route: 065
  331. INFLIXIMAB [Suspect]
     Active Substance: INFLIXIMAB
     Route: 065
  332. INFLIXIMAB [Suspect]
     Active Substance: INFLIXIMAB
     Route: 065
  333. INFLIXIMAB [Suspect]
     Active Substance: INFLIXIMAB
     Route: 065
  334. INFLIXIMAB [Suspect]
     Active Substance: INFLIXIMAB
     Route: 065
  335. INFLIXIMAB [Suspect]
     Active Substance: INFLIXIMAB
     Route: 065
  336. INFLIXIMAB [Suspect]
     Active Substance: INFLIXIMAB
     Route: 065
  337. INFLIXIMAB [Suspect]
     Active Substance: INFLIXIMAB
     Route: 065
  338. INFLIXIMAB [Suspect]
     Active Substance: INFLIXIMAB
     Route: 065
  339. INFLIXIMAB [Suspect]
     Active Substance: INFLIXIMAB
     Route: 065
  340. INFLIXIMAB [Suspect]
     Active Substance: INFLIXIMAB
     Route: 065
  341. INFLIXIMAB [Suspect]
     Active Substance: INFLIXIMAB
     Route: 042
  342. INFLIXIMAB [Suspect]
     Active Substance: INFLIXIMAB
     Route: 042
  343. INFLIXIMAB [Suspect]
     Active Substance: INFLIXIMAB
     Route: 042
  344. INFLIXIMAB [Suspect]
     Active Substance: INFLIXIMAB
     Route: 042
  345. INFLIXIMAB [Suspect]
     Active Substance: INFLIXIMAB
     Route: 042
  346. INFLIXIMAB [Suspect]
     Active Substance: INFLIXIMAB
     Route: 042
  347. INFLIXIMAB [Suspect]
     Active Substance: INFLIXIMAB
     Route: 042
  348. INFLIXIMAB [Suspect]
     Active Substance: INFLIXIMAB
     Route: 042
  349. INFLIXIMAB [Suspect]
     Active Substance: INFLIXIMAB
     Route: 042
  350. LEVOTHYROXINE SODIUM [Suspect]
     Active Substance: LEVOTHYROXINE SODIUM
     Indication: Product used for unknown indication
     Route: 065
  351. LEVOTHYROXINE SODIUM [Suspect]
     Active Substance: LEVOTHYROXINE SODIUM
     Route: 065
  352. LISDEXAMFETAMINE DIMESYLATE [Suspect]
     Active Substance: LISDEXAMFETAMINE DIMESYLATE
     Indication: Product used for unknown indication
     Route: 065
  353. MEBEVERINE HYDROCHLORIDE [Suspect]
     Active Substance: MEBEVERINE HYDROCHLORIDE
     Indication: Product used for unknown indication
     Route: 065
  354. MEBEVERINE HYDROCHLORIDE [Suspect]
     Active Substance: MEBEVERINE HYDROCHLORIDE
     Route: 065
  355. MESALAMINE [Suspect]
     Active Substance: MESALAMINE
     Indication: Colitis ulcerative
     Route: 065
  356. MESALAMINE [Suspect]
     Active Substance: MESALAMINE
     Route: 065
  357. MESALAMINE [Suspect]
     Active Substance: MESALAMINE
     Indication: Colitis ulcerative
     Route: 065
  358. MESALAMINE [Suspect]
     Active Substance: MESALAMINE
     Route: 065
  359. MESALAMINE [Suspect]
     Active Substance: MESALAMINE
     Route: 065
  360. MESALAMINE [Suspect]
     Active Substance: MESALAMINE
     Route: 065
  361. MESALAMINE [Suspect]
     Active Substance: MESALAMINE
     Route: 065
  362. MESALAMINE [Suspect]
     Active Substance: MESALAMINE
     Route: 065
  363. MESALAMINE [Suspect]
     Active Substance: MESALAMINE
     Route: 065
  364. MESALAMINE [Suspect]
     Active Substance: MESALAMINE
     Route: 065
  365. MESALAMINE [Suspect]
     Active Substance: MESALAMINE
     Route: 065
  366. MESALAMINE [Suspect]
     Active Substance: MESALAMINE
     Route: 065
  367. MESALAMINE [Suspect]
     Active Substance: MESALAMINE
     Route: 065
  368. MESALAMINE [Suspect]
     Active Substance: MESALAMINE
     Route: 065
  369. MESALAMINE [Suspect]
     Active Substance: MESALAMINE
     Route: 065
  370. MESALAMINE [Suspect]
     Active Substance: MESALAMINE
     Route: 065
  371. MESALAMINE [Suspect]
     Active Substance: MESALAMINE
     Route: 065
  372. MESALAMINE [Suspect]
     Active Substance: MESALAMINE
     Route: 065
  373. MESALAMINE [Suspect]
     Active Substance: MESALAMINE
     Route: 065
  374. MESALAMINE [Suspect]
     Active Substance: MESALAMINE
     Route: 065
  375. MESALAMINE [Suspect]
     Active Substance: MESALAMINE
     Route: 065
  376. MESALAMINE [Suspect]
     Active Substance: MESALAMINE
     Route: 065
  377. MESALAMINE [Suspect]
     Active Substance: MESALAMINE
     Route: 065
  378. MESALAMINE [Suspect]
     Active Substance: MESALAMINE
     Route: 065
  379. MESALAMINE [Suspect]
     Active Substance: MESALAMINE
     Route: 065
  380. MESALAMINE [Suspect]
     Active Substance: MESALAMINE
     Route: 065
  381. MESALAMINE [Suspect]
     Active Substance: MESALAMINE
     Route: 065
  382. MESALAMINE [Suspect]
     Active Substance: MESALAMINE
     Route: 065
  383. MESALAMINE [Suspect]
     Active Substance: MESALAMINE
     Route: 065
  384. MESALAMINE [Suspect]
     Active Substance: MESALAMINE
     Route: 065
  385. MESALAMINE [Suspect]
     Active Substance: MESALAMINE
     Route: 065
  386. MESALAMINE [Suspect]
     Active Substance: MESALAMINE
     Route: 065
  387. MESALAMINE [Suspect]
     Active Substance: MESALAMINE
     Route: 065
  388. MESALAMINE [Suspect]
     Active Substance: MESALAMINE
     Route: 065
  389. MESALAMINE [Suspect]
     Active Substance: MESALAMINE
     Route: 065
  390. MESALAMINE [Suspect]
     Active Substance: MESALAMINE
     Route: 065
  391. MESALAMINE [Suspect]
     Active Substance: MESALAMINE
     Route: 065
  392. MESALAMINE [Suspect]
     Active Substance: MESALAMINE
     Route: 065
  393. MESALAMINE [Suspect]
     Active Substance: MESALAMINE
     Route: 065
  394. MESALAMINE [Suspect]
     Active Substance: MESALAMINE
     Route: 065
  395. MESALAMINE [Suspect]
     Active Substance: MESALAMINE
     Route: 065
  396. MESALAMINE [Suspect]
     Active Substance: MESALAMINE
     Route: 065
  397. MESALAMINE [Suspect]
     Active Substance: MESALAMINE
     Route: 065
  398. MESALAMINE [Suspect]
     Active Substance: MESALAMINE
     Route: 065
  399. MESALAMINE [Suspect]
     Active Substance: MESALAMINE
     Route: 065
  400. MESALAMINE [Suspect]
     Active Substance: MESALAMINE
     Route: 065
  401. MESALAMINE [Suspect]
     Active Substance: MESALAMINE
     Route: 065
  402. MESALAMINE [Suspect]
     Active Substance: MESALAMINE
     Route: 065
  403. MESALAMINE [Suspect]
     Active Substance: MESALAMINE
     Route: 065
  404. MESALAMINE [Suspect]
     Active Substance: MESALAMINE
     Route: 065
  405. MESALAMINE [Suspect]
     Active Substance: MESALAMINE
     Route: 065
  406. MESALAMINE [Suspect]
     Active Substance: MESALAMINE
     Indication: Colitis ulcerative
     Route: 048
  407. MESALAMINE [Suspect]
     Active Substance: MESALAMINE
     Route: 048
  408. MESALAMINE [Suspect]
     Active Substance: MESALAMINE
     Route: 065
  409. MESALAMINE [Suspect]
     Active Substance: MESALAMINE
     Dosage: 2.4 GRAM, QD
     Route: 065
  410. MESALAMINE [Suspect]
     Active Substance: MESALAMINE
     Dosage: 4.8 MG, QD
     Route: 065
  411. MESALAMINE [Suspect]
     Active Substance: MESALAMINE
     Route: 065
  412. MESALAMINE [Suspect]
     Active Substance: MESALAMINE
     Route: 048
  413. MESALAMINE [Suspect]
     Active Substance: MESALAMINE
     Dosage: 2.4 GRAM, QD
     Route: 065
  414. MESALAMINE [Suspect]
     Active Substance: MESALAMINE
     Route: 048
  415. MESALAMINE [Suspect]
     Active Substance: MESALAMINE
     Route: 065
  416. MESALAMINE [Suspect]
     Active Substance: MESALAMINE
     Route: 065
  417. MESALAMINE [Suspect]
     Active Substance: MESALAMINE
     Route: 065
  418. MESALAMINE [Suspect]
     Active Substance: MESALAMINE
     Dosage: 4.8 MG, QD
     Route: 065
  419. MESALAMINE [Suspect]
     Active Substance: MESALAMINE
     Route: 065
  420. MESALAMINE [Suspect]
     Active Substance: MESALAMINE
     Dosage: 8 DOSAGE FORMS, QD
     Route: 065
  421. MESALAMINE [Suspect]
     Active Substance: MESALAMINE
     Route: 065
  422. MESALAMINE [Suspect]
     Active Substance: MESALAMINE
     Route: 048
  423. MESALAMINE [Suspect]
     Active Substance: MESALAMINE
     Dosage: 4.8 GRAM, QD
     Route: 065
  424. MESALAMINE [Suspect]
     Active Substance: MESALAMINE
     Route: 048
  425. MESALAMINE [Suspect]
     Active Substance: MESALAMINE
     Dosage: 3 GRAM, QD
     Route: 065
  426. MESALAMINE [Suspect]
     Active Substance: MESALAMINE
     Route: 065
  427. MESALAMINE [Suspect]
     Active Substance: MESALAMINE
     Route: 065
  428. MESALAMINE [Suspect]
     Active Substance: MESALAMINE
     Dosage: 6 DOSAGE FORMS, QD
     Route: 048
  429. MESALAMINE [Suspect]
     Active Substance: MESALAMINE
     Route: 065
  430. MESALAMINE [Suspect]
     Active Substance: MESALAMINE
     Route: 065
  431. MESALAMINE [Suspect]
     Active Substance: MESALAMINE
     Route: 065
  432. MESALAMINE [Suspect]
     Active Substance: MESALAMINE
     Dosage: 2.4 GRAM 1 EVERY 1 DAYS
     Route: 065
  433. MESALAMINE [Suspect]
     Active Substance: MESALAMINE
     Indication: Colitis ulcerative
     Route: 065
  434. MESALAMINE [Suspect]
     Active Substance: MESALAMINE
     Route: 048
  435. MESALAMINE [Suspect]
     Active Substance: MESALAMINE
     Route: 065
  436. MESALAMINE [Suspect]
     Active Substance: MESALAMINE
     Dosage: 3 GRAM, 1 EVERY 1 DAYS
     Route: 065
  437. MESALAMINE [Suspect]
     Active Substance: MESALAMINE
     Route: 048
  438. MESALAMINE [Suspect]
     Active Substance: MESALAMINE
     Route: 048
  439. MESALAMINE [Suspect]
     Active Substance: MESALAMINE
     Route: 048
  440. MESALAMINE [Suspect]
     Active Substance: MESALAMINE
     Route: 065
  441. MESALAMINE [Suspect]
     Active Substance: MESALAMINE
     Dosage: 3 GRAM, 1 EVERY 1 DAYS
     Route: 065
  442. MESALAMINE [Suspect]
     Active Substance: MESALAMINE
     Route: 065
  443. MESALAMINE [Suspect]
     Active Substance: MESALAMINE
     Route: 065
  444. MESALAMINE [Suspect]
     Active Substance: MESALAMINE
     Route: 065
  445. MESALAMINE [Suspect]
     Active Substance: MESALAMINE
     Route: 048
  446. MESALAMINE [Suspect]
     Active Substance: MESALAMINE
     Route: 065
  447. MESALAMINE [Suspect]
     Active Substance: MESALAMINE
     Dosage: 6 DOSAGE FORMS 1 EVERY 1 DAYS
     Route: 048
  448. MESALAMINE [Suspect]
     Active Substance: MESALAMINE
     Route: 065
  449. MESALAMINE [Suspect]
     Active Substance: MESALAMINE
     Route: 065
  450. MESALAMINE [Suspect]
     Active Substance: MESALAMINE
     Dosage: 1 DOSAGE FORMS 1 EVERY 1 DAYS
     Route: 048
  451. MESALAMINE [Suspect]
     Active Substance: MESALAMINE
     Route: 048
  452. MESALAMINE [Suspect]
     Active Substance: MESALAMINE
     Dosage: 4.8 GRAM, 1 EVERY 1 DAYS
     Route: 065
  453. MESALAMINE [Suspect]
     Active Substance: MESALAMINE
     Dosage: 6 DOSAGE FORMS 1 EVERY 1 DAYS
     Route: 065
  454. METFORMIN [Suspect]
     Active Substance: METFORMIN HYDROCHLORIDE
     Indication: Product used for unknown indication
     Route: 065
  455. METFORMIN [Suspect]
     Active Substance: METFORMIN HYDROCHLORIDE
     Route: 065
  456. OMEPRAZOLE [Suspect]
     Active Substance: OMEPRAZOLE
     Indication: Gastritis
     Route: 065
  457. OMEPRAZOLE [Suspect]
     Active Substance: OMEPRAZOLE
     Indication: Gastritis
     Route: 065
  458. OXYCODONE [Suspect]
     Active Substance: OXYCODONE
     Indication: Product used for unknown indication
     Route: 065
  459. OXYCODONE HYDROCHLORIDE [Suspect]
     Active Substance: OXYCODONE HYDROCHLORIDE
     Indication: Product used for unknown indication
     Dosage: 5 MILLIGRAM, 1 EVERY 1 DAYS
     Route: 065
  460. OXYCODONE HYDROCHLORIDE [Suspect]
     Active Substance: OXYCODONE HYDROCHLORIDE
     Dosage: 10 MILLIGRAM, 1 EVERY 1 DAYS
     Route: 065
  461. PARA-AMINOSALICYLIC ACID [Suspect]
     Active Substance: AMINOSALICYLIC ACID
     Indication: Product used for unknown indication
     Route: 048
  462. PREDNISONE [Suspect]
     Active Substance: PREDNISONE
     Indication: Colitis ulcerative
     Route: 065
  463. PREDNISONE [Suspect]
     Active Substance: PREDNISONE
     Route: 065
  464. PREDNISONE [Suspect]
     Active Substance: PREDNISONE
     Route: 065
  465. PREDNISONE [Suspect]
     Active Substance: PREDNISONE
     Route: 065
  466. PREDNISONE [Suspect]
     Active Substance: PREDNISONE
     Route: 065
  467. PREDNISONE [Suspect]
     Active Substance: PREDNISONE
     Route: 065
  468. PREDNISONE [Suspect]
     Active Substance: PREDNISONE
     Route: 065
  469. PREDNISONE [Suspect]
     Active Substance: PREDNISONE
     Route: 065
  470. PREDNISONE [Suspect]
     Active Substance: PREDNISONE
     Route: 065
  471. PREDNISONE [Suspect]
     Active Substance: PREDNISONE
     Route: 065
  472. PREDNISONE [Suspect]
     Active Substance: PREDNISONE
     Indication: Colitis ulcerative
     Route: 065
  473. ROSUVASTATIN [Suspect]
     Active Substance: ROSUVASTATIN
     Indication: Ill-defined disorder
     Route: 065
  474. ROSUVASTATIN [Suspect]
     Active Substance: ROSUVASTATIN
     Indication: Blood cholesterol increased
     Route: 065
  475. ROSUVASTATIN CALCIUM [Suspect]
     Active Substance: ROSUVASTATIN CALCIUM
     Indication: Ill-defined disorder
     Route: 065
  476. ROSUVASTATIN CALCIUM [Suspect]
     Active Substance: ROSUVASTATIN CALCIUM
     Indication: Blood cholesterol increased
     Route: 065
  477. ROSUVASTATIN CALCIUM [Suspect]
     Active Substance: ROSUVASTATIN CALCIUM
     Route: 065
  478. ROSUVASTATIN CALCIUM [Suspect]
     Active Substance: ROSUVASTATIN CALCIUM
     Route: 065
  479. ROSUVASTATIN CALCIUM [Suspect]
     Active Substance: ROSUVASTATIN CALCIUM
     Route: 065
  480. ROSUVASTATIN CALCIUM [Suspect]
     Active Substance: ROSUVASTATIN CALCIUM
     Route: 065
  481. ROSUVASTATIN CALCIUM [Suspect]
     Active Substance: ROSUVASTATIN CALCIUM
     Route: 065
  482. ROSUVASTATIN CALCIUM [Suspect]
     Active Substance: ROSUVASTATIN CALCIUM
     Route: 065
  483. MESALAMINE [Suspect]
     Active Substance: MESALAMINE
     Indication: Product used for unknown indication
     Route: 065
  484. SULFASALAZINE [Suspect]
     Active Substance: SULFASALAZINE
     Indication: Colitis ulcerative
     Route: 065
  485. SULFASALAZINE [Suspect]
     Active Substance: SULFASALAZINE
     Route: 065
  486. SULFASALAZINE [Suspect]
     Active Substance: SULFASALAZINE
     Dosage: 3 MILLIGRAM 1 EVERY 1 DAYS
     Route: 048
  487. SULFASALAZINE [Suspect]
     Active Substance: SULFASALAZINE
     Route: 065
  488. SULFASALAZINE [Suspect]
     Active Substance: SULFASALAZINE
     Route: 065
  489. SULFASALAZINE [Suspect]
     Active Substance: SULFASALAZINE
     Route: 048
  490. SULFASALAZINE [Suspect]
     Active Substance: SULFASALAZINE
     Route: 065
  491. SULFASALAZINE [Suspect]
     Active Substance: SULFASALAZINE
     Route: 065
  492. SULFASALAZINE [Suspect]
     Active Substance: SULFASALAZINE
     Route: 065
  493. SULFASALAZINE [Suspect]
     Active Substance: SULFASALAZINE
     Route: 048
  494. SULFASALAZINE [Suspect]
     Active Substance: SULFASALAZINE
     Route: 048
  495. SULFASALAZINE [Suspect]
     Active Substance: SULFASALAZINE
     Route: 048
  496. SULFASALAZINE [Suspect]
     Active Substance: SULFASALAZINE
     Route: 048
  497. SULFASALAZINE [Suspect]
     Active Substance: SULFASALAZINE
     Route: 048
  498. SULFASALAZINE [Suspect]
     Active Substance: SULFASALAZINE
     Route: 065
  499. SULFASALAZINE [Suspect]
     Active Substance: SULFASALAZINE
     Route: 065
  500. SULFASALAZINE [Suspect]
     Active Substance: SULFASALAZINE
     Dosage: 3 MILLIGRAM 1 EVERY 1 DAYS
     Route: 048
  501. SULFASALAZINE [Suspect]
     Active Substance: SULFASALAZINE
     Dosage: 3 MILLIGRAM 1 EVERY 1 DAYS
     Route: 048
  502. SULFASALAZINE [Suspect]
     Active Substance: SULFASALAZINE
     Dosage: 3 MILLIGRAM 1 EVERY 1 DAYS
     Route: 048
  503. SULFASALAZINE [Suspect]
     Active Substance: SULFASALAZINE
     Route: 065
  504. TOZINAMERAN [Suspect]
     Active Substance: TOZINAMERAN
     Indication: Product used for unknown indication
     Route: 065
  505. VITAMIN D3 [Suspect]
     Active Substance: CHOLECALCIFEROL
     Indication: Product used for unknown indication
     Route: 065
  506. VITAMIN D3 [Suspect]
     Active Substance: CHOLECALCIFEROL
     Indication: Product used for unknown indication
     Route: 065
  507. VYVANSE [Suspect]
     Active Substance: LISDEXAMFETAMINE DIMESYLATE
     Indication: Attention deficit hyperactivity disorder
     Route: 065
  508. WARFARIN [Suspect]
     Active Substance: WARFARIN
     Indication: Deep vein thrombosis
     Route: 048
  509. WARFARIN [Suspect]
     Active Substance: WARFARIN
     Indication: Colitis ulcerative
     Route: 065
  510. WARFARIN [Suspect]
     Active Substance: WARFARIN
     Route: 065
  511. WARFARIN [Suspect]
     Active Substance: WARFARIN
     Indication: Deep vein thrombosis
     Route: 048
  512. WARFARIN [Suspect]
     Active Substance: WARFARIN
     Indication: Colitis ulcerative
     Route: 048
  513. WARFARIN [Suspect]
     Active Substance: WARFARIN
     Route: 048
  514. WARFARIN [Suspect]
     Active Substance: WARFARIN
     Route: 048
  515. WARFARIN [Suspect]
     Active Substance: WARFARIN
     Route: 048
  516. WARFARIN [Suspect]
     Active Substance: WARFARIN
     Route: 048
  517. WARFARIN [Suspect]
     Active Substance: WARFARIN
     Route: 048
  518. WARFARIN [Suspect]
     Active Substance: WARFARIN
     Route: 048
  519. WARFARIN [Suspect]
     Active Substance: WARFARIN
     Route: 048
  520. WARFARIN [Suspect]
     Active Substance: WARFARIN
     Route: 048
  521. WARFARIN [Suspect]
     Active Substance: WARFARIN
     Route: 048
  522. WARFARIN [Suspect]
     Active Substance: WARFARIN
     Route: 048
  523. WARFARIN [Suspect]
     Active Substance: WARFARIN
     Route: 048
  524. WARFARIN [Suspect]
     Active Substance: WARFARIN
     Route: 048
  525. WARFARIN [Suspect]
     Active Substance: WARFARIN
     Route: 048
  526. WARFARIN [Suspect]
     Active Substance: WARFARIN
     Route: 048
  527. WARFARIN [Suspect]
     Active Substance: WARFARIN
     Route: 048
  528. WARFARIN [Suspect]
     Active Substance: WARFARIN
     Route: 048
  529. WARFARIN [Suspect]
     Active Substance: WARFARIN
     Route: 048
  530. WARFARIN [Suspect]
     Active Substance: WARFARIN
     Route: 048
  531. WARFARIN [Suspect]
     Active Substance: WARFARIN
     Route: 048
  532. WARFARIN SODIUM [Suspect]
     Active Substance: WARFARIN SODIUM
     Indication: Deep vein thrombosis
     Route: 048
  533. WARFARIN SODIUM [Suspect]
     Active Substance: WARFARIN SODIUM
     Indication: Colitis ulcerative
     Route: 048
  534. WARFARIN SODIUM [Suspect]
     Active Substance: WARFARIN SODIUM
     Route: 048
  535. WARFARIN SODIUM [Suspect]
     Active Substance: WARFARIN SODIUM
     Route: 065
  536. WARFARIN SODIUM [Suspect]
     Active Substance: WARFARIN SODIUM
     Route: 048
  537. WARFARIN SODIUM [Suspect]
     Active Substance: WARFARIN SODIUM
     Route: 048
  538. WARFARIN SODIUM [Suspect]
     Active Substance: WARFARIN SODIUM
     Route: 048
  539. WARFARIN SODIUM [Suspect]
     Active Substance: WARFARIN SODIUM
     Route: 048
  540. WARFARIN SODIUM [Suspect]
     Active Substance: WARFARIN SODIUM
     Route: 048
  541. WARFARIN SODIUM [Suspect]
     Active Substance: WARFARIN SODIUM
     Route: 048
  542. WARFARIN SODIUM [Suspect]
     Active Substance: WARFARIN SODIUM
     Route: 048
  543. WARFARIN SODIUM [Suspect]
     Active Substance: WARFARIN SODIUM
     Route: 048
  544. WARFARIN SODIUM [Suspect]
     Active Substance: WARFARIN SODIUM
     Route: 048
  545. WARFARIN SODIUM [Suspect]
     Active Substance: WARFARIN SODIUM
     Route: 048
  546. WARFARIN SODIUM [Suspect]
     Active Substance: WARFARIN SODIUM
     Route: 048
  547. WARFARIN SODIUM [Suspect]
     Active Substance: WARFARIN SODIUM
     Route: 048
  548. WARFARIN SODIUM [Suspect]
     Active Substance: WARFARIN SODIUM
     Route: 048
  549. WARFARIN SODIUM [Suspect]
     Active Substance: WARFARIN SODIUM
     Route: 048
  550. WARFARIN SODIUM [Suspect]
     Active Substance: WARFARIN SODIUM
     Route: 048
  551. WARFARIN SODIUM [Suspect]
     Active Substance: WARFARIN SODIUM
     Route: 048
  552. WARFARIN SODIUM [Suspect]
     Active Substance: WARFARIN SODIUM
     Route: 048
  553. WARFARIN SODIUM [Suspect]
     Active Substance: WARFARIN SODIUM
     Route: 048
  554. WARFARIN SODIUM [Suspect]
     Active Substance: WARFARIN SODIUM
     Route: 048
  555. WARFARIN SODIUM [Suspect]
     Active Substance: WARFARIN SODIUM
     Route: 048
  556. WARFARIN SODIUM [Suspect]
     Active Substance: WARFARIN SODIUM
     Route: 048
  557. WARFARIN SODIUM [Suspect]
     Active Substance: WARFARIN SODIUM
     Route: 048
  558. WARFARIN SODIUM [Suspect]
     Active Substance: WARFARIN SODIUM
     Route: 048
  559. WARFARIN SODIUM [Suspect]
     Active Substance: WARFARIN SODIUM
     Route: 048
  560. WARFARIN SODIUM [Suspect]
     Active Substance: WARFARIN SODIUM
     Route: 048
  561. WARFARIN SODIUM [Suspect]
     Active Substance: WARFARIN SODIUM
     Route: 048
  562. WARFARIN SODIUM [Suspect]
     Active Substance: WARFARIN SODIUM
     Route: 065
  563. WARFARIN SODIUM [Suspect]
     Active Substance: WARFARIN SODIUM
     Route: 065
  564. ACETAMINOPHEN [Concomitant]
     Active Substance: ACETAMINOPHEN
     Indication: Product used for unknown indication
     Route: 065
  565. ALGINIC ACID\ALUMINUM HYDROXIDE\MAGNESIUM TRISILICATE\SODIUM BICARBONA [Concomitant]
     Active Substance: ALGINIC ACID\ALUMINUM HYDROXIDE\MAGNESIUM TRISILICATE\SODIUM BICARBONATE
     Indication: Product used for unknown indication
     Route: 065
  566. AMLODIPINE BESYLATE [Concomitant]
     Active Substance: AMLODIPINE BESYLATE
     Indication: Product used for unknown indication
     Route: 065
  567. AMLODIPINE BESYLATE [Concomitant]
     Active Substance: AMLODIPINE BESYLATE
     Indication: Product used for unknown indication
     Route: 065
  568. AMLODIPINE BESYLATE [Concomitant]
     Active Substance: AMLODIPINE BESYLATE
     Route: 065
  569. ATORVASTATIN CALCIUM [Concomitant]
     Active Substance: ATORVASTATIN CALCIUM
     Indication: Product used for unknown indication
     Route: 065
  570. ATORVASTATIN CALCIUM [Concomitant]
     Active Substance: ATORVASTATIN CALCIUM
     Indication: Product used for unknown indication
     Route: 065
  571. ATORVASTATIN CALCIUM [Concomitant]
     Active Substance: ATORVASTATIN CALCIUM
     Route: 065
  572. BETNOVATE [Concomitant]
     Active Substance: BETAMETHASONE
     Indication: Ill-defined disorder
     Route: 065
  573. BISOPROLOL [Concomitant]
     Active Substance: BISOPROLOL
     Indication: Ill-defined disorder
     Route: 065
  574. BISOPROLOL [Concomitant]
     Active Substance: BISOPROLOL
     Indication: Dyscalculia
  575. BISOPROLOL [Concomitant]
     Active Substance: BISOPROLOL
     Indication: Ill-defined disorder
     Route: 065
  576. BISOPROLOL [Concomitant]
     Active Substance: BISOPROLOL
     Indication: Dyscalculia
     Route: 065
  577. BISOPROLOL [Concomitant]
     Active Substance: BISOPROLOL
     Route: 065
  578. CALCIUM CARBONATE;MAGNESIUM CARBONATE [Concomitant]
     Indication: Product used for unknown indication
     Route: 065
  579. CALCIUM CARBONATE;SODIUM ALGINATE [Concomitant]
     Indication: Product used for unknown indication
     Route: 065
  580. CALCIUM CARBONATE;SODIUM ALGINATE;SODIUM BICARBONATE [Concomitant]
     Indication: Product used for unknown indication
     Route: 065
  581. CALCIUM CARBONATE\CHOLECALCIFEROL [Concomitant]
     Active Substance: CALCIUM CARBONATE\CHOLECALCIFEROL
     Indication: Product used for unknown indication
     Route: 065
  582. CALCIUM CARBONATE\CHOLECALCIFEROL [Concomitant]
     Active Substance: CALCIUM CARBONATE\CHOLECALCIFEROL
     Route: 065
  583. CITALOPRAM HYDROBROMIDE [Concomitant]
     Active Substance: CITALOPRAM HYDROBROMIDE
     Indication: Ill-defined disorder
     Route: 065
  584. CLOBETASONE BUTYRATE [Concomitant]
     Active Substance: CLOBETASONE BUTYRATE
     Indication: Ill-defined disorder
     Route: 065
  585. DAPAGLIFLOZIN [Concomitant]
     Active Substance: DAPAGLIFLOZIN
     Indication: Product used for unknown indication
     Route: 065
  586. DORZOLAMIDE HYDROCHLORIDE [Concomitant]
     Active Substance: DORZOLAMIDE HYDROCHLORIDE
     Indication: Ill-defined disorder
     Route: 065
  587. DORZOLAMIDE HYDROCHLORIDE [Concomitant]
     Active Substance: DORZOLAMIDE HYDROCHLORIDE
     Indication: Product used for unknown indication
     Route: 065
  588. DORZOLAMIDE HYDROCHLORIDE [Concomitant]
     Active Substance: DORZOLAMIDE HYDROCHLORIDE
     Route: 065
  589. DORZOLAMIDE HYDROCHLORIDE [Concomitant]
     Active Substance: DORZOLAMIDE HYDROCHLORIDE
     Route: 047
  590. EMPAGLIFLOZIN [Concomitant]
     Active Substance: EMPAGLIFLOZIN
     Indication: Ill-defined disorder
     Route: 065
  591. EMPAGLIFLOZIN [Concomitant]
     Active Substance: EMPAGLIFLOZIN
     Indication: Ill-defined disorder
     Route: 065
  592. FESOTERODINE FUMARATE [Concomitant]
     Active Substance: FESOTERODINE FUMARATE
     Indication: Product used for unknown indication
     Route: 065
  593. FOLIC ACID [Concomitant]
     Active Substance: FOLIC ACID
     Indication: Product used for unknown indication
     Route: 065
  594. LYRICA [Concomitant]
     Active Substance: PREGABALIN
     Indication: Ill-defined disorder
     Route: 065
  595. LANSOPRAZOLE [Concomitant]
     Active Substance: LANSOPRAZOLE
     Indication: Ill-defined disorder
     Route: 065
  596. LATANOPROST [Concomitant]
     Active Substance: LATANOPROST
     Indication: Product used for unknown indication
     Route: 065
  597. LATANOPROST [Concomitant]
     Active Substance: LATANOPROST
     Route: 065
  598. LATANOPROST [Concomitant]
     Active Substance: LATANOPROST
     Route: 065
  599. LATANOPROST [Concomitant]
     Active Substance: LATANOPROST
     Route: 065
  600. LATANOPROST [Concomitant]
     Active Substance: LATANOPROST
     Indication: Product used for unknown indication
     Route: 065
  601. POLYETHYLENE GLYCOLS [Concomitant]
     Active Substance: POLYETHYLENE GLYCOLS
     Indication: Product used for unknown indication
     Route: 065
  602. POLYETHYLENE GLYCOL 3350\POTASSIUM CHLORIDE\SODIUM BICARBONATE\SODIUM [Concomitant]
     Active Substance: POLYETHYLENE GLYCOL 3350\POTASSIUM CHLORIDE\SODIUM BICARBONATE\SODIUM CHLORIDE
     Indication: Product used for unknown indication
     Route: 065
  603. POLYETHYLENE GLYCOL 3350\POTASSIUM CHLORIDE\SODIUM BICARBONATE\SODIUM [Concomitant]
     Active Substance: POLYETHYLENE GLYCOL 3350\POTASSIUM CHLORIDE\SODIUM BICARBONATE\SODIUM CHLORIDE
     Route: 065
  604. POLYETHYLENE GLYCOL 3350\POTASSIUM CHLORIDE\SODIUM BICARBONATE\SODIUM [Concomitant]
     Active Substance: POLYETHYLENE GLYCOL 3350\POTASSIUM CHLORIDE\SODIUM BICARBONATE\SODIUM CHLORIDE
     Route: 065
  605. POLYETHYLENE GLYCOL 3350\POTASSIUM CHLORIDE\SODIUM BICARBONATE\SODIUM [Concomitant]
     Active Substance: POLYETHYLENE GLYCOL 3350\POTASSIUM CHLORIDE\SODIUM BICARBONATE\SODIUM CHLORIDE
     Route: 065
  606. METHOTREXATE [Concomitant]
     Active Substance: METHOTREXATE
     Indication: Colitis ulcerative
     Route: 065
  607. METHOTREXATE [Concomitant]
     Active Substance: METHOTREXATE
     Route: 065
  608. METHOTREXATE [Concomitant]
     Active Substance: METHOTREXATE
     Route: 065
  609. METHOTREXATE [Concomitant]
     Active Substance: METHOTREXATE
     Route: 065
  610. MINERAL OIL [Concomitant]
     Active Substance: MINERAL OIL
     Indication: Ill-defined disorder
     Route: 065
  611. NAPHAZOLINE HYDROCHLORIDE [Concomitant]
     Active Substance: NAPHAZOLINE HYDROCHLORIDE
     Indication: Ill-defined disorder
     Route: 065
  612. NITROFURANTOIN [Concomitant]
     Active Substance: NITROFURANTOIN
     Indication: Ill-defined disorder
     Route: 065
  613. OMEPRAZOLE [Concomitant]
     Active Substance: OMEPRAZOLE
     Indication: Product used for unknown indication
     Route: 065
  614. PARAFFIN [Concomitant]
     Active Substance: PARAFFIN
     Indication: Product used for unknown indication
     Route: 065
  615. PRAVASTATIN [Concomitant]
     Active Substance: PRAVASTATIN
     Indication: Ill-defined disorder
     Route: 065
  616. RAMIPRIL [Concomitant]
     Active Substance: RAMIPRIL
     Indication: Ill-defined disorder
     Route: 065
  617. RIVAROXABAN [Concomitant]
     Active Substance: RIVAROXABAN
     Indication: Product used for unknown indication
     Route: 065
  618. ROSUVASTATIN CALCIUM [Concomitant]
     Active Substance: ROSUVASTATIN CALCIUM
     Indication: Product used for unknown indication
     Route: 065
  619. TAMSULOSIN HYDROCHLORIDE [Concomitant]
     Active Substance: TAMSULOSIN HYDROCHLORIDE
     Indication: Ill-defined disorder
     Route: 065
  620. XELJANZ [Concomitant]
     Active Substance: TOFACITINIB CITRATE
     Indication: Colitis ulcerative
     Route: 048
  621. XELJANZ [Concomitant]
     Active Substance: TOFACITINIB CITRATE
     Route: 048
  622. XELJANZ [Concomitant]
     Active Substance: TOFACITINIB CITRATE
     Route: 048
  623. XELJANZ [Concomitant]
     Active Substance: TOFACITINIB CITRATE
     Route: 048
  624. XELJANZ [Concomitant]
     Active Substance: TOFACITINIB CITRATE
     Route: 048
  625. TETRAHYDROZOLINE HYDROCHLORIDE [Concomitant]
     Active Substance: TETRAHYDROZOLINE HYDROCHLORIDE
     Indication: Product used for unknown indication
     Route: 065
  626. TOFACITINIB CITRATE [Concomitant]
     Active Substance: TOFACITINIB CITRATE
     Indication: Product used for unknown indication
     Route: 065

REACTIONS (55)
  - Alcohol poisoning [Not Recovered/Not Resolved]
  - Adverse drug reaction [Not Recovered/Not Resolved]
  - Weight decreased [Not Recovered/Not Resolved]
  - Depression [Not Recovered/Not Resolved]
  - Bronchiectasis [Not Recovered/Not Resolved]
  - Burns second degree [Not Recovered/Not Resolved]
  - Cardiac murmur [Not Recovered/Not Resolved]
  - Colitis ulcerative [Not Recovered/Not Resolved]
  - Colitis ulcerative [Not Recovered/Not Resolved]
  - Condition aggravated [Not Recovered/Not Resolved]
  - Dysgeusia [Not Recovered/Not Resolved]
  - Impaired quality of life [Not Recovered/Not Resolved]
  - Impaired work ability [Not Recovered/Not Resolved]
  - Rectal haemorrhage [Not Recovered/Not Resolved]
  - Steroid dependence [Not Recovered/Not Resolved]
  - Parosmia [Not Recovered/Not Resolved]
  - Catarrh [Not Recovered/Not Resolved]
  - Gingival pain [Not Recovered/Not Resolved]
  - Loss of personal independence in daily activities [Not Recovered/Not Resolved]
  - Loss of personal independence in daily activities [Not Recovered/Not Resolved]
  - Nightmare [Not Recovered/Not Resolved]
  - Somnolence [Not Recovered/Not Resolved]
  - Stress [Not Recovered/Not Resolved]
  - Tubulointerstitial nephritis [Not Recovered/Not Resolved]
  - Hypopnoea [Not Recovered/Not Resolved]
  - Swollen tongue [Not Recovered/Not Resolved]
  - Rhinitis [Not Recovered/Not Resolved]
  - Haematochezia [Not Recovered/Not Resolved]
  - Fatigue [Not Recovered/Not Resolved]
  - Migraine [Not Recovered/Not Resolved]
  - Frequent bowel movements [Not Recovered/Not Resolved]
  - Deep vein thrombosis [Not Recovered/Not Resolved]
  - Confusional state [Not Recovered/Not Resolved]
  - Eczema [Not Recovered/Not Resolved]
  - Abdominal discomfort [Not Recovered/Not Resolved]
  - Palpitations [Not Recovered/Not Resolved]
  - Vertigo [Not Recovered/Not Resolved]
  - Systemic lupus erythematosus [Not Recovered/Not Resolved]
  - Tinnitus [Not Recovered/Not Resolved]
  - Headache [Not Recovered/Not Resolved]
  - Arthritis [Not Recovered/Not Resolved]
  - Pulmonary embolism [Not Recovered/Not Resolved]
  - Cerebrovascular accident [Not Recovered/Not Resolved]
  - COVID-19 [Not Recovered/Not Resolved]
  - Pain [Not Recovered/Not Resolved]
  - Pyrexia [Not Recovered/Not Resolved]
  - Pain in extremity [Not Recovered/Not Resolved]
  - Rash [Not Recovered/Not Resolved]
  - Accidental overdose [Not Recovered/Not Resolved]
  - Drug ineffective [Not Recovered/Not Resolved]
  - Inappropriate schedule of product administration [Not Recovered/Not Resolved]
  - Product use in unapproved indication [Not Recovered/Not Resolved]
  - Intentional product use issue [Not Recovered/Not Resolved]
  - Medication error [Not Recovered/Not Resolved]
  - Off label use [Not Recovered/Not Resolved]
